FAERS Safety Report 15928339 (Version 1)
Quarter: 2019Q1

REPORT INFORMATION
  Report Type: Spontaneous
  Country: US (occurrence: US)
  Receive Date: 20190206
  Receipt Date: 20190206
  Transmission Date: 20190417
  Serious: Yes (Hospitalization, Other)
  Sender: FDA-Public Use
  Company Number: US-OTSUKA-2018_023995

PATIENT
  Sex: Male

DRUGS (2)
  1. ABILIFY [Suspect]
     Active Substance: ARIPIPRAZOLE
     Indication: SCHIZOPHRENIA
     Dosage: 30 MG, QD
     Route: 065
     Dates: end: 201601
  2. ABILIFY [Suspect]
     Active Substance: ARIPIPRAZOLE
     Indication: ANXIETY

REACTIONS (12)
  - Suicide attempt [Recovered/Resolved]
  - Economic problem [Unknown]
  - Loss of employment [Unknown]
  - Mental disorder [Unknown]
  - Dermatillomania [Recovered/Resolved]
  - Trichotillomania [Recovered/Resolved]
  - Gambling disorder [Recovered/Resolved]
  - Compulsive hoarding [Recovered/Resolved]
  - Obsessive-compulsive disorder [Recovered/Resolved]
  - Condition aggravated [Recovered/Resolved]
  - Compulsive shopping [Recovered/Resolved]
  - Product use in unapproved indication [Unknown]

NARRATIVE: CASE EVENT DATE: 2008
